FAERS Safety Report 5448755-1 (Version None)
Quarter: 2007Q3

REPORT INFORMATION
  Report Type: 
  Country: None (occurrence: None)
  Receive Date: 20070911
  Receipt Date: 20070911
  Transmission Date: 20080115
  Serious: Yes (Life-Threatening, Hospitalization)
  Sender: FDA-Public Use
  Company Number: B0486511A

PATIENT
  Age: 83 Year
  Sex: Female
  Weight: 42 kg

DRUGS (1)
  1. ARIXTRA [Suspect]
     Indication: DRUG USE FOR UNKNOWN INDICATION
     Dosage: 2.5MG PER DAY
     Route: 058
     Dates: start: 20070801, end: 20070812

REACTIONS (2)
  - DEPRESSED LEVEL OF CONSCIOUSNESS [None]
  - HAEMOGLOBIN DECREASED [None]
